FAERS Safety Report 4935833-6 (Version None)
Quarter: 2006Q1

REPORT INFORMATION
  Report Type: 
  Country: None (occurrence: None)
  Receive Date: 20060127
  Receipt Date: 20051109
  Transmission Date: 20060701
  Serious: Yes (Other)
  Sender: FDA-Public Use
  Company Number: 2005154209

PATIENT
  Age: 54 Year
  Sex: Female
  Weight: 66.6788 kg

DRUGS (22)
  1. LYRICA [Suspect]
     Indication: FIBROMYALGIA
     Dosage: 150 MG (75 MG, 2 IN 1 D)
     Dates: start: 20051109
  2. GEMFIBROZIL [Suspect]
     Indication: BLOOD CHOLESTEROL
     Dosage: 1200 MG (600 MG, 2 IN 1 D)
  3. CYCLOBENZAPRINE HCL [Suspect]
     Indication: MUSCLE SPASMS
     Dosage: 30 MG (10 MG, 3 IN 1 D)
  4. TOPAMAX [Suspect]
     Indication: MIGRAINE PROPHYLAXIS
     Dosage: (100 MG, 1 IN 1 D)
  5. LORATADINE [Suspect]
     Indication: MULTIPLE ALLERGIES
     Dosage: 10 MG (10 MG, 1 IN 1 D)
  6. OMEPRAZOLE [Suspect]
     Indication: ILL-DEFINED DISORDER
     Dosage: 40 MG (20 MG, 2 IN 1 D)
  7. PROPRANOLOL [Concomitant]
  8. MORPHINE [Concomitant]
  9. TRAZODONE HCL [Concomitant]
  10. VITAMINS (VITAMINS) [Concomitant]
  11. ESTROGENS SOL/INJ [Concomitant]
  12. DOCUSATE (DOCUSATE) [Concomitant]
  13. ISOMETHEPTENE MUCATE (ISOMETHEPTENE MUCATE) [Concomitant]
  14. VENLAFAXINE HCL [Concomitant]
  15. ESTRADIOL [Concomitant]
  16. SENNOSIDES (SENNOSIDE A+B) [Concomitant]
  17. SODIUM CHLORIDE 0.9% [Concomitant]
  18. MULTIVITAMINS WITH MINERALS (MULTIVITAMINS WITH MINERALS) [Concomitant]
  19. VITAMIN E [Concomitant]
  20. CALCIUM CARBONATE (CALCIUM CARBONATE) [Concomitant]
  21. LUTEIN (XANTHOPHYLL) [Concomitant]
  22. ARTIFICIAL TEARS (ARTIFICIAL TEARS) [Concomitant]

REACTIONS (1)
  - DRY MOUTH [None]
